FAERS Safety Report 10179395 (Version 2)
Quarter: 2014Q3

REPORT INFORMATION
  Report Type: Spontaneous
  Country: US (occurrence: US)
  Receive Date: 20140519
  Receipt Date: 20140708
  Transmission Date: 20150326
  Serious: No
  Sender: FDA-Public Use
  Company Number: US-TEVA-482203USA

PATIENT
  Sex: Female
  Weight: 64.01 kg

DRUGS (3)
  1. PARAGARD T380A [Suspect]
     Active Substance: COPPER
     Route: 015
     Dates: start: 20140606
  2. PARAGARD T380A [Suspect]
     Active Substance: COPPER
     Indication: CONTRACEPTION
     Route: 015
     Dates: start: 20140326
  3. AMBIEN [Concomitant]
     Active Substance: ZOLPIDEM TARTRATE
     Indication: INSOMNIA
     Dosage: PRN
     Route: 048

REACTIONS (1)
  - Device expulsion [Recovered/Resolved]
